FAERS Safety Report 7592448-1 (Version None)
Quarter: 2011Q3

REPORT INFORMATION
  Report Type: 
  Country: None (occurrence: None)
  Receive Date: 20110706
  Receipt Date: 20110623
  Transmission Date: 20111222
  Serious: Yes (Other)
  Sender: FDA-Public Use
  Company Number: US-AMGEN-USASP2011030467

PATIENT
  Age: 52 Year
  Sex: Male
  Weight: 93.424 kg

DRUGS (1)
  1. ENBREL [Suspect]
     Indication: PSORIATIC ARTHROPATHY
     Dosage: 50 MG, QWK
     Route: 058
     Dates: start: 20011001, end: 20110608

REACTIONS (6)
  - VISUAL ACUITY REDUCED [None]
  - UPPER RESPIRATORY TRACT INFECTION [None]
  - BRONCHITIS [None]
  - FATIGUE [None]
  - SCLERAL DISORDER [None]
  - SINUSITIS [None]
